FAERS Safety Report 21750626 (Version 1)
Quarter: 2022Q4

REPORT INFORMATION
  Report Type: Spontaneous
  Country: CN (occurrence: CN)
  Receive Date: 20221219
  Receipt Date: 20221219
  Transmission Date: 20230112
  Serious: Yes (Hospitalization)
  Sender: FDA-Public Use
  Company Number: CN-002147023-NVSC2022CN281512

PATIENT
  Age: 62 Year
  Sex: Male

DRUGS (2)
  1. ZYKADIA [Suspect]
     Active Substance: CERITINIB
     Indication: Lung adenocarcinoma stage IV
     Dosage: 450 MG, QD
     Route: 048
     Dates: start: 20211201, end: 20220107
  2. ZYKADIA [Suspect]
     Active Substance: CERITINIB
     Dosage: DOSE REDUCED TO 300 MG, QD
     Route: 048
     Dates: start: 20220107, end: 20220108

REACTIONS (1)
  - Drug-induced liver injury [Recovering/Resolving]

NARRATIVE: CASE EVENT DATE: 20220107
